FAERS Safety Report 10210736 (Version 1)
Quarter: 2014Q2

REPORT INFORMATION
  Report Type: Spontaneous
  Country: US (occurrence: None)
  Receive Date: 20140530
  Receipt Date: 20140530
  Transmission Date: 20141212
  Serious: Yes (Other)
  Sender: FDA-Public Use
  Company Number: None

PATIENT
  Age: 24 Year
  Sex: Female
  Weight: 77.11 kg

DRUGS (1)
  1. CREST PRO-HEALTH [Suspect]
     Dosage: 16.9 OZ 2X PER DAY
     Dates: start: 20140422, end: 20140423

REACTIONS (3)
  - Ageusia [None]
  - Dysgeusia [None]
  - Paraesthesia oral [None]
